FAERS Safety Report 9171773 (Version 1)
Quarter: 2013Q1

REPORT INFORMATION
  Report Type: Report from Study
  Country: VE (occurrence: VE)
  Receive Date: 20130319
  Receipt Date: 20130319
  Transmission Date: 20140127
  Serious: Yes (Other)
  Sender: FDA-Public Use
  Company Number: VE-ABBOTT-13P-178-1063291-00

PATIENT
  Sex: Female
  Weight: 69 kg

DRUGS (3)
  1. HUMIRA [Suspect]
     Indication: RHEUMATOID ARTHRITIS
     Route: 058
     Dates: start: 20090701, end: 201107
  2. METHOTREXATE [Concomitant]
     Indication: RHEUMATOID ARTHRITIS
     Route: 048
     Dates: end: 201107
  3. ISONIAZID [Concomitant]
     Indication: TUBERCULOSIS
     Route: 048
     Dates: start: 201108, end: 201208

REACTIONS (1)
  - Tuberculin test positive [Recovered/Resolved]
